FAERS Safety Report 17393806 (Version 1)
Quarter: 2020Q1

REPORT INFORMATION
  Report Type: Spontaneous
  Country: US (occurrence: US)
  Receive Date: 20200209
  Receipt Date: 20200209
  Transmission Date: 20200409
  Serious: No
  Sender: FDA-Public Use
  Company Number: US-BAUSCH-BL-2020-002271

PATIENT
  Age: 86 Year
  Sex: Male

DRUGS (3)
  1. MURO 128 [Suspect]
     Active Substance: SODIUM CHLORIDE
     Indication: RETINAL OEDEMA
     Dosage: 2 TO 3 WEEKS AGO, 1 DROP IN BOTH EYES EVERY 3 TO 4 HOURS
     Route: 047
     Dates: end: 202001
  2. PROLENSA [Suspect]
     Active Substance: BROMFENAC SODIUM
     Indication: PRODUCT USED FOR UNKNOWN INDICATION
     Dosage: SEVERAL YEARS AGO
     Route: 047
  3. MURO 128 [Suspect]
     Active Substance: SODIUM CHLORIDE
     Dosage: INSTILLED 2 DROPS IN THE MORNING
     Route: 047
     Dates: start: 20200121

REACTIONS (2)
  - Vision blurred [Not Recovered/Not Resolved]
  - Cyanopsia [Not Recovered/Not Resolved]
